FAERS Safety Report 5487019-7 (Version None)
Quarter: 2007Q4

REPORT INFORMATION
  Report Type: 
  Country: None (occurrence: None)
  Receive Date: 20071016
  Receipt Date: 20071010
  Transmission Date: 20080405
  Serious: Yes (Death, Other)
  Sender: FDA-Public Use
  Company Number: HQWYE070407SEP07

PATIENT
  Sex: Male

DRUGS (15)
  1. AMIODARONE [Suspect]
     Indication: VENTRICULAR TACHYCARDIA
     Dosage: LOADING DOSE 2.5 MG/DL AT 15 ML/HR
     Route: 042
     Dates: start: 20070824, end: 20070825
  2. AMIODARONE [Suspect]
     Indication: VENTRICULAR FIBRILLATION
     Dosage: MAINTENANCE INFUSION 2.5 MG/DL AT 10 ML/HR
     Route: 042
     Dates: start: 20070825, end: 20070826
  3. AMIODARONE [Suspect]
     Dosage: 2.5 MG/DL AT 12 ML/HR
     Route: 042
     Dates: start: 20070826, end: 20070826
  4. AMIODARONE [Suspect]
     Dosage: 2.5 MG/DL AT 13.3 ML/HR
     Route: 042
     Dates: start: 20070826, end: 20070827
  5. LIDOCAINE [Concomitant]
     Indication: VENTRICULAR TACHYCARDIA
     Route: 042
     Dates: start: 20070817, end: 20070827
  6. LIDOCAINE [Concomitant]
     Indication: VENTRICULAR FIBRILLATION
  7. CARPERITIDE [Concomitant]
     Indication: CARDIAC FAILURE CONGESTIVE
     Route: 042
     Dates: start: 20070817, end: 20070825
  8. ACETYLSALICYLIC ACID [Concomitant]
     Indication: ANTIPLATELET THERAPY
     Dosage: UNSPECIFIED
     Route: 048
     Dates: end: 20070817
  9. VOGLIBOSE [Concomitant]
     Dosage: UNSPECIFIED
     Route: 048
  10. VALSARTAN [Concomitant]
     Indication: HYPERTENSION
     Dosage: UNSPECIFIED
     Route: 048
     Dates: end: 20070817
  11. NITROGLYCERIN ^PHARMACIA-UPJOHN^ [Concomitant]
     Dosage: UNSPECIFIED
     Route: 048
     Dates: end: 20070817
  12. PIOGLITAZONE HCL [Concomitant]
     Dosage: UNSPECIFIED
     Route: 048
  13. GLIMEPIRIDE [Concomitant]
     Dosage: UNSPECIFIED
     Route: 048
  14. CATABON [Concomitant]
     Indication: CARDIAC FAILURE CONGESTIVE
     Dosage: ^3-5 Y^
     Route: 042
     Dates: start: 20070817, end: 20070825
  15. TICLOPIDINE HYDROCHLORIDE [Concomitant]
     Indication: ANTIPLATELET THERAPY
     Dosage: UNSPECIFIED
     Route: 048
     Dates: end: 20070817

REACTIONS (5)
  - CONDITION AGGRAVATED [None]
  - DRUG INEFFECTIVE [None]
  - ELECTROCARDIOGRAM QT PROLONGED [None]
  - VENTRICULAR FIBRILLATION [None]
  - VENTRICULAR TACHYCARDIA [None]
